FAERS Safety Report 19772973 (Version 4)
Quarter: 2023Q1

REPORT INFORMATION
  Report Type: Spontaneous
  Country: DE (occurrence: DE)
  Receive Date: 20210901
  Receipt Date: 20230108
  Transmission Date: 20230417
  Serious: Yes (Other)
  Sender: FDA-Public Use
  Company Number: DE-002147023-NVSC2020DE336323

PATIENT
  Sex: Female
  Weight: 62 kg

DRUGS (3)
  1. LETROZOLE [Suspect]
     Active Substance: LETROZOLE
     Indication: Breast cancer metastatic
     Dosage: 2.5 MILLIGRAM, ONCE A DAY (2.5 MG, QD)
     Route: 048
     Dates: start: 20191031, end: 20200930
  2. KISQALI [Suspect]
     Active Substance: RIBOCICLIB
     Indication: Breast cancer metastatic
     Dosage: 400 MILLIGRAM, ONCE A DAY (400 MG, QD)
     Route: 048
     Dates: start: 20191031, end: 20200917
  3. FULVESTRANT [Concomitant]
     Active Substance: FULVESTRANT
     Indication: Breast cancer metastatic
     Dosage: 500 MILLIGRAM, EVERY MONTH (500 MG, QMO)
     Route: 030
     Dates: start: 20201001

REACTIONS (4)
  - Leukopenia [Recovered/Resolved]
  - Thrombocytopenia [Recovering/Resolving]
  - Neutropenia [Recovered/Resolved]
  - Anaemia [Recovered/Resolved]

NARRATIVE: CASE EVENT DATE: 20191219
